FAERS Safety Report 5354356-6 (Version None)
Quarter: 2007Q2

REPORT INFORMATION
  Report Type: 
  Country: None (occurrence: None)
  Receive Date: 20070612
  Receipt Date: 20070601
  Transmission Date: 20071010
  Serious: Yes (Death, Life-Threatening, Hospitalization)
  Sender: FDA-Public Use
  Company Number: HQWYE400103APR07

PATIENT
  Weight: 92 kg

DRUGS (7)
  1. GEMTUZUMAB OZOGAMICIN [Suspect]
     Dosage: UNKNOWN
     Route: 065
     Dates: start: 20070314
  2. CYTARABINE [Suspect]
     Indication: ACUTE MYELOID LEUKAEMIA
     Dosage: 150 MG (100MG/M2); CUMMULATIVE DOSE = 2550 MG
     Route: 065
     Dates: start: 20061207, end: 20070319
  3. ONDANSETRON [Concomitant]
     Dosage: 1 /DAY
     Route: 042
     Dates: start: 20070315, end: 20070322
  4. ACYCLOVIR [Concomitant]
     Dosage: 400 MG X3/DAY
     Route: 048
     Dates: start: 20070315, end: 20070325
  5. SERTRALINE [Concomitant]
     Indication: VOMITING
     Dosage: 50 MG
     Route: 048
     Dates: end: 20070326
  6. IDARUBICIN HCL [Suspect]
     Indication: ACUTE MYELOID LEUKAEMIA
     Dosage: 10 MG; CUMMULATIVE DOSE = 60 MG
     Route: 065
     Dates: start: 20070120, end: 20070319
  7. ETOPOSIDE [Suspect]
     Indication: ACUTE MYELOID LEUKAEMIA
     Dosage: 150 MG; CUMMULATIVE DOSE = 1350 MG
     Route: 065
     Dates: start: 20061207, end: 20070317

REACTIONS (6)
  - BLOOD CULTURE POSITIVE [None]
  - CIRCULATORY COLLAPSE [None]
  - DIARRHOEA [None]
  - PYREXIA [None]
  - SEPTIC SHOCK [None]
  - VOMITING [None]
